FAERS Safety Report 9871372 (Version 1)
Quarter: 2014Q1

REPORT INFORMATION
  Report Type: Spontaneous
  Country: NO (occurrence: NO)
  Receive Date: 20140205
  Receipt Date: 20140205
  Transmission Date: 20141002
  Serious: Yes (Other)
  Sender: FDA-Public Use
  Company Number: NO-PFIZER INC-2014031118

PATIENT
  Age: 81 Year
  Sex: Male

DRUGS (2)
  1. MYCOPHENOLATE MOFETIL [Suspect]
     Dosage: UNK
  2. PREDNISOLONE [Suspect]
     Dosage: UNK

REACTIONS (1)
  - Granulomatosis with polyangiitis [Recovered/Resolved]
